FAERS Safety Report 18113462 (Version 1)
Quarter: 2020Q3

REPORT INFORMATION
  Report Type: Spontaneous
  Country: US (occurrence: US)
  Receive Date: 20200805
  Receipt Date: 20200805
  Transmission Date: 20201103
  Serious: No
  Sender: FDA-Public Use
  Company Number: US-PFIZER INC-2020295090

PATIENT
  Age: 46 Year
  Sex: Female
  Weight: 63.5 kg

DRUGS (3)
  1. CELEXA [Concomitant]
     Active Substance: CITALOPRAM HYDROBROMIDE
     Indication: DEPRESSION
     Dosage: 40 MG, 1X/DAY (40MG TABLETS, 1 TABLET ONCE A DAY BY MOUTH)
     Route: 048
  2. PREMARIN [Suspect]
     Active Substance: ESTROGENS, CONJUGATED
     Indication: HORMONE REPLACEMENT THERAPY
     Dosage: 1.25 MG, 1X/DAY (1.25MG TABLETS, 1 TABLET A DAY)
     Route: 048
     Dates: start: 2003
  3. PREMARIN [Suspect]
     Active Substance: ESTROGENS, CONJUGATED
     Dosage: 0.9 MG, 1X/DAY (0.9MG TABLETS, 1 TABLET A DAY BY MOUTH)
     Route: 048

REACTIONS (4)
  - Hot flush [Unknown]
  - Irritability [Unknown]
  - Prescription drug used without a prescription [Unknown]
  - Road traffic accident [Unknown]

NARRATIVE: CASE EVENT DATE: 2016
